FAERS Safety Report 10731161 (Version 1)
Quarter: 2015Q1

REPORT INFORMATION
  Report Type: Report from Study
  Country: CA (occurrence: CA)
  Receive Date: 20150122
  Receipt Date: 20150122
  Transmission Date: 20150721
  Serious: Yes (Hospitalization)
  Sender: FDA-Public Use
  Company Number: CA-BRISTOL-MYERS SQUIBB COMPANY-BMS-2015-001420

PATIENT
  Sex: Female

DRUGS (18)
  1. BISOPROLOL [Concomitant]
     Active Substance: BISOPROLOL
  2. LISINOPRIL. [Concomitant]
     Active Substance: LISINOPRIL
  3. PERCOCET                           /00446701/ [Concomitant]
     Active Substance: ACETAMINOPHEN\OXYCODONE HYDROCHLORIDE\OXYCODONE TEREPHTHALATE
  4. PROLEAK [Concomitant]
  5. FENTANYL. [Concomitant]
     Active Substance: FENTANYL
  6. RAMIPRIL. [Concomitant]
     Active Substance: RAMIPRIL
  7. SPIROTON [Concomitant]
  8. FUROSEMIDE. [Concomitant]
     Active Substance: FUROSEMIDE
  9. SULFASALAZINE. [Concomitant]
     Active Substance: SULFASALAZINE
  10. FOLIC ACID. [Concomitant]
     Active Substance: FOLIC ACID
  11. VITAMIN D                          /00107901/ [Concomitant]
     Active Substance: ERGOCALCIFEROL
  12. MACROBID [Concomitant]
     Active Substance: NITROFURANTOIN\NITROFURANTOIN MONOHYDRATE
  13. ASPIRIN                            /00002701/ [Concomitant]
     Active Substance: ASPIRIN
  14. ELTROXIN [Concomitant]
     Active Substance: LEVOTHYROXINE
  15. METHOTREXATE [Concomitant]
     Active Substance: METHOTREXATE
  16. VAGIFEM [Concomitant]
     Active Substance: ESTRADIOL
  17. ABATACEPT [Suspect]
     Active Substance: ABATACEPT
     Indication: RHEUMATOID ARTHRITIS
     Dosage: 750 MG, Q4WK
     Route: 042
     Dates: start: 20130408
  18. PREDNISONE. [Concomitant]
     Active Substance: PREDNISONE

REACTIONS (2)
  - White blood cell count decreased [Unknown]
  - Asthenia [Unknown]
